FAERS Safety Report 6154147-2 (Version None)
Quarter: 2009Q2

REPORT INFORMATION
  Report Type: 
  Country: None (occurrence: None)
  Receive Date: 20090414
  Receipt Date: 20090402
  Transmission Date: 20091009
  Serious: Yes (Hospitalization, Other)
  Sender: FDA-Public Use
  Company Number: US-ROCHE-619728

PATIENT
  Sex: Female

DRUGS (5)
  1. PEG-INTERFERON A-2A (RO 25-8310) [Suspect]
     Indication: HEPATITIS C
     Dosage: PRE FILLED SYRINGE
     Route: 065
     Dates: start: 20080811
  2. PEG-INTERFERON A-2A (RO 25-8310) [Suspect]
     Dosage: PATIENT IN WEEK 34
     Route: 065
  3. RIBAVIRIN [Suspect]
     Indication: HEPATITIS C
     Route: 065
     Dates: start: 20080811
  4. RIBAVIRIN [Suspect]
     Dosage: PATIENT IN WEEK 34
     Route: 065
  5. LEVOXYL [Concomitant]
     Indication: THYROID DISORDER

REACTIONS (7)
  - BLISTER [None]
  - DIABETES MELLITUS [None]
  - DRY SKIN [None]
  - FATIGUE [None]
  - INFECTION [None]
  - SKIN ULCER [None]
  - WHITE BLOOD CELL COUNT DECREASED [None]
